FAERS Safety Report 6406922-4 (Version None)
Quarter: 2009Q4

REPORT INFORMATION
  Report Type: 
  Country: None (occurrence: None)
  Receive Date: 20091015
  Receipt Date: 20091009
  Transmission Date: 20100525
  Serious: Yes (Hospitalization)
  Sender: FDA-Public Use
  Company Number: US-1170864

PATIENT
  Age: 64 Year
  Sex: Female

DRUGS (2)
  1. MYDRIACYL [Suspect]
     Indication: OPHTHALMOLOGICAL EXAMINATION
     Dosage: (1 GTT OU  3X-ONE TIME USE OPHTHALMIC)
     Route: 047
     Dates: start: 20070101, end: 20070101
  2. NEO-SYNEPHRINOL [Concomitant]

REACTIONS (4)
  - INCORRECT DRUG ADMINISTRATION DURATION [None]
  - LACK OF SPONTANEOUS SPEECH [None]
  - TRANSIENT ISCHAEMIC ATTACK [None]
  - VISUAL IMPAIRMENT [None]
